FAERS Safety Report 19270792 (Version 3)
Quarter: 2021Q2

REPORT INFORMATION
  Report Type: Spontaneous
  Country: CA (occurrence: CA)
  Receive Date: 20210518
  Receipt Date: 20210601
  Transmission Date: 20210717
  Serious: Yes (Death, Hospitalization, Other)
  Sender: FDA-Public Use
  Company Number: CA-BIOVITRUM-2021CA4520

PATIENT
  Age: 31 Year
  Sex: Female

DRUGS (3)
  1. PLASMA?PLEX [Concomitant]
     Active Substance: PLASMA PROTEIN FRACTION (HUMAN)
  2. ANAKINRA [Suspect]
     Active Substance: ANAKINRA
     Indication: STILL^S DISEASE
     Dates: start: 20210222
  3. ANAKINRA [Suspect]
     Active Substance: ANAKINRA
     Indication: HAEMOPHAGOCYTIC LYMPHOHISTIOCYTOSIS

REACTIONS (8)
  - Off label use [Unknown]
  - Enterococcal infection [Fatal]
  - Abdominal compartment syndrome [Fatal]
  - Dry gangrene [Unknown]
  - Coma hepatic [Unknown]
  - Upper gastrointestinal haemorrhage [Fatal]
  - Pyrexia [Unknown]
  - Pneumonia [Unknown]

NARRATIVE: CASE EVENT DATE: 20210222
